FAERS Safety Report 9303061 (Version 1)
Quarter: 2013Q2

REPORT INFORMATION
  Report Type: Not Available
  Country: DE (occurrence: None)
  Receive Date: 20130516
  Receipt Date: 20130516
  Transmission Date: 20140414
  Serious: Yes (Other)
  Sender: FDA-Public Use
  Company Number: 1305-630

PATIENT
  Sex: Male

DRUGS (1)
  1. EYLEA [Suspect]
     Indication: AGE-RELATED MACULAR DEGENERATION
     Dates: start: 201302

REACTIONS (5)
  - Injection site pain [None]
  - Reading disorder [None]
  - Skin cancer [None]
  - Pain [None]
  - Condition aggravated [None]
